FAERS Safety Report 25644194 (Version 3)
Quarter: 2025Q3

REPORT INFORMATION
  Report Type: Spontaneous
  Country: UA (occurrence: UA)
  Receive Date: 20250805
  Receipt Date: 20250828
  Transmission Date: 20251021
  Serious: Yes (Hospitalization, Other)
  Sender: ALEXION PHARMACEUTICALS
  Company Number: UA-ASTRAZENECA-202508UAM000123UA

PATIENT
  Age: 12 Year
  Sex: Male
  Weight: 48 kg

DRUGS (8)
  1. OMEPRAZOLE [Suspect]
     Active Substance: OMEPRAZOLE
     Indication: Crohn^s disease
     Dosage: 20 MILLIGRAM, QD
     Route: 065
  2. OMEPRAZOLE [Suspect]
     Active Substance: OMEPRAZOLE
     Dosage: 40 MILLIGRAM, QD
     Route: 065
  3. METHYLPREDNISOLONE [Suspect]
     Active Substance: METHYLPREDNISOLONE
     Route: 065
  4. METHYLPREDNISOLONE [Suspect]
     Active Substance: METHYLPREDNISOLONE
     Dosage: 8 MG/DAY
     Route: 065
  5. MESALAMINE [Suspect]
     Active Substance: MESALAMINE
     Dosage: 3 GRAM, QD
     Route: 065
  6. MESALAMINE [Suspect]
     Active Substance: MESALAMINE
     Dosage: 1500 MILLIGRAM, QD
     Route: 065
  7. URSODIOL [Concomitant]
     Active Substance: URSODIOL
     Dosage: 500 MILLIGRAM, QD
     Route: 065
  8. AZATHIOPRINE [Concomitant]
     Active Substance: AZATHIOPRINE
     Dosage: 100 MG/DAY
     Route: 065

REACTIONS (4)
  - Hyperadrenocorticism [Unknown]
  - Drug-induced liver injury [Unknown]
  - Intestinal haemorrhage [Unknown]
  - Anaemia [Unknown]
